FAERS Safety Report 5187178-X (Version None)
Quarter: 2006Q4

REPORT INFORMATION
  Report Type: 
  Country: None (occurrence: None)
  Receive Date: 20061214
  Receipt Date: 20061204
  Transmission Date: 20070319
  Serious: Yes (Hospitalization)
  Sender: FDA-Public Use
  Company Number: S06-GER-02188-01

PATIENT
  Age: 17 Year
  Sex: Female

DRUGS (3)
  1. AXURA (MEMANTINE HYDROCHLORIE) [Suspect]
     Indication: SUICIDE ATTEMPT
     Dosage: 100 MG QD PO
     Route: 048
     Dates: start: 20060529, end: 20060529
  2. ETHANOL [Suspect]
     Dates: start: 20060529, end: 20060529
  3. VERAPAMIL [Suspect]
     Dosage: 2400 MG QD PO
     Route: 048
     Dates: start: 20060529, end: 20060529

REACTIONS (5)
  - ELECTROCARDIOGRAM ST SEGMENT ABNORMAL [None]
  - HYPOKINESIA [None]
  - MULTIPLE DRUG OVERDOSE INTENTIONAL [None]
  - SUICIDE ATTEMPT [None]
  - VOMITING [None]
